FAERS Safety Report 10057301 (Version 1)
Quarter: 2014Q2

REPORT INFORMATION
  Report Type: Spontaneous
  Country: JP (occurrence: JP)
  Receive Date: 20140403
  Receipt Date: 20140403
  Transmission Date: 20141212
  Serious: Yes (Hospitalization)
  Sender: FDA-Public Use
  Company Number: JP-BRACCO-007954

PATIENT
  Age: 46 Year
  Sex: Female

DRUGS (6)
  1. FAMOTIDINE [Concomitant]
  2. IOPAMIRON [Suspect]
     Indication: COMPUTERISED TOMOGRAM CORONARY ARTERY
     Route: 042
     Dates: start: 20140310, end: 20140310
  3. SIGMART [Concomitant]
  4. AMLODIPINE [Concomitant]
  5. BENIDIPINE HYDROCHLORIDE [Concomitant]
  6. BAYASPIRIN [Concomitant]

REACTIONS (3)
  - Toxic skin eruption [Recovered/Resolved]
  - Headache [Recovered/Resolved]
  - Palpitations [Recovered/Resolved]
